FAERS Safety Report 16696063 (Version 2)
Quarter: 2019Q3

REPORT INFORMATION
  Report Type: Spontaneous
  Country: JP (occurrence: JP)
  Receive Date: 20190813
  Receipt Date: 20190829
  Transmission Date: 20191004
  Serious: Yes (Hospitalization, Other)
  Sender: FDA-Public Use
  Company Number: JP-ASTELLAS-2019JP016639

PATIENT
  Age: 8 Decade
  Sex: Male

DRUGS (1)
  1. XOSPATA [Suspect]
     Active Substance: GILTERITINIB
     Indication: PRODUCT USED FOR UNKNOWN INDICATION
     Route: 048

REACTIONS (1)
  - Pneumonia [Recovered/Resolved]
